FAERS Safety Report 8109340 (Version 4)
Quarter: 2014Q2

REPORT INFORMATION
  Report Type: Spontaneous
  Country: US (occurrence: US)
  Receive Date: 20110826
  Receipt Date: 20140530
  Transmission Date: 20141212
  Serious: Yes (Hospitalization, Other)
  Sender: FDA-Public Use
  Company Number: US-BAYER-2011-075110

PATIENT
  Age: 18 Year
  Sex: Female
  Weight: 73.92 kg

DRUGS (4)
  1. YAZ [Suspect]
     Dosage: UNK
     Dates: start: 2006, end: 2009
  2. YAZ [Suspect]
  3. OCELLA [Suspect]
     Dosage: UNK
     Dates: start: 2006, end: 2009
  4. ANAPROX DS [Concomitant]
     Dosage: 550 MG, BID
     Dates: start: 20090613

REACTIONS (5)
  - Cholecystitis acute [None]
  - Cholelithiasis [None]
  - Gallbladder injury [None]
  - Injury [None]
  - Pain [None]
